FAERS Safety Report 5299494-1 (Version None)
Quarter: 2007Q2

REPORT INFORMATION
  Report Type: 
  Country: None (occurrence: None)
  Receive Date: 20070417
  Receipt Date: 20070411
  Transmission Date: 20071010
  Serious: Yes (Death, Life-Threatening)
  Sender: FDA-Public Use
  Company Number: 2007UW01462

PATIENT
  Age: 82 Year
  Sex: Male
  Weight: 80 kg

DRUGS (3)
  1. CRESTOR [Suspect]
     Route: 048
     Dates: start: 20060815, end: 20061116
  2. ENALAPRIL MALEATE [Concomitant]
     Indication: HYPERTENSION
     Route: 048
     Dates: start: 19960101
  3. ASPIRIN [Concomitant]
     Indication: CORONARY ARTERY DISEASE
     Dates: start: 19960101

REACTIONS (3)
  - MULTI-ORGAN FAILURE [None]
  - PANCREATITIS HAEMORRHAGIC [None]
  - PANCREATITIS NECROTISING [None]
